APPROVED DRUG PRODUCT: DAPTOMYCIN
Active Ingredient: DAPTOMYCIN
Strength: 500MG/VIAL
Dosage Form/Route: POWDER;INTRAVENOUS
Application: A215316 | Product #001 | TE Code: AP
Applicant: QILU PHARMACEUTICAL HAINAN CO LTD
Approved: Aug 24, 2021 | RLD: No | RS: Yes | Type: RX